FAERS Safety Report 19862838 (Version 2)
Quarter: 2021Q3

REPORT INFORMATION
  Report Type: Spontaneous
  Country: DE (occurrence: DE)
  Receive Date: 20210921
  Receipt Date: 20210927
  Transmission Date: 20211014
  Serious: Yes (Other)
  Sender: FDA-Public Use
  Company Number: DE-PFIZER INC-202101157163

PATIENT
  Age: 44 Year
  Sex: Male

DRUGS (13)
  1. VALPROATE [Suspect]
     Active Substance: VALPROIC ACID
     Indication: STATUS EPILEPTICUS
     Dosage: 2400 MG, 1X/DAY
     Route: 065
  2. LEVETIRACETAM. [Suspect]
     Active Substance: LEVETIRACETAM
     Indication: STATUS EPILEPTICUS
     Dosage: 300 MG, 1X/DAY
     Route: 065
  3. CLONAZEPAM. [Suspect]
     Active Substance: CLONAZEPAM
     Indication: STATUS EPILEPTICUS
     Dosage: 3 MG, 1X/DAY
     Route: 065
  4. PERAMPANEL [Concomitant]
     Active Substance: PERAMPANEL
     Dosage: 4 MG, 1X/DAY
  5. PREGABALIN. [Suspect]
     Active Substance: PREGABALIN
     Indication: STATUS EPILEPTICUS
     Dosage: 300 MG, 1X/DAY
     Route: 065
  6. LAMOTRIGINE. [Suspect]
     Active Substance: LAMOTRIGINE
     Indication: STATUS EPILEPTICUS
     Dosage: 100 MG, 1X/DAY
     Route: 065
  7. LAMOTRIGINE. [Suspect]
     Active Substance: LAMOTRIGINE
     Dosage: 50 MG, 1X/DAY
     Route: 065
  8. CLOBAZAM. [Suspect]
     Active Substance: CLOBAZAM
     Indication: STATUS EPILEPTICUS
     Dosage: UNK
     Route: 065
  9. METHSUXIMIDE [Suspect]
     Active Substance: METHSUXIMIDE
     Indication: STATUS EPILEPTICUS
     Dosage: UNK
     Route: 065
  10. PHENYTOIN. [Suspect]
     Active Substance: PHENYTOIN
     Indication: STATUS EPILEPTICUS
     Dosage: 100 MG, 1X/DAY
     Route: 065
  11. VALPROATE [Suspect]
     Active Substance: VALPROIC ACID
     Dosage: 1800 MG, DAILY
  12. GABAPENTIN. [Suspect]
     Active Substance: GABAPENTIN
     Indication: STATUS EPILEPTICUS
     Dosage: UNK
     Route: 065
  13. PERAMPANEL [Concomitant]
     Active Substance: PERAMPANEL
     Dosage: 6 MG, 1X/DAY

REACTIONS (2)
  - Thrombocytopenia [Unknown]
  - Treatment failure [Unknown]
